FAERS Safety Report 21054997 (Version 5)
Quarter: 2022Q4

REPORT INFORMATION
  Report Type: Other
  Country: JP (occurrence: JP)
  Receive Date: 20220707
  Receipt Date: 20221123
  Transmission Date: 20230113
  Serious: Yes (Hospitalization, Other)
  Sender: FDA-Public Use
  Company Number: JP-CHUGAI-2022000581

PATIENT
  Age: 49 Year
  Sex: Male
  Weight: 72.1 kg

DRUGS (10)
  1. ATEZOLIZUMAB [Suspect]
     Active Substance: ATEZOLIZUMAB
     Indication: Lung adenocarcinoma
     Dosage: 1200 MILLIGRAM, ONCE/4WEEKS
     Route: 041
     Dates: start: 20211021, end: 20220310
  2. ATEZOLIZUMAB [Suspect]
     Active Substance: ATEZOLIZUMAB
     Dosage: 1200 MILLIGRAM
     Route: 041
     Dates: start: 20220331
  3. ATEZOLIZUMAB [Suspect]
     Active Substance: ATEZOLIZUMAB
     Dosage: 1200 MILLIGRAM, ONCE/4WEEKS
     Route: 041
     Dates: start: 20220421, end: 20220519
  4. BEVACIZUMAB [Suspect]
     Active Substance: BEVACIZUMAB
     Indication: Lung adenocarcinoma
     Dosage: 1080 MILLIGRAM, ONCE/4WEEKS
     Route: 041
     Dates: start: 20211021, end: 20220310
  5. BEVACIZUMAB [Suspect]
     Active Substance: BEVACIZUMAB
     Dosage: 1080 MILLIGRAM
     Route: 041
     Dates: start: 20220331
  6. BEVACIZUMAB [Suspect]
     Active Substance: BEVACIZUMAB
     Dosage: 1052 MILLIGRAM, ONCE/4WEEKS, MOST RECENT DOSE 19/MAY/2022
     Route: 041
     Dates: start: 20220421
  7. CARBOPLATIN [Suspect]
     Active Substance: CARBOPLATIN
     Indication: Lung adenocarcinoma
     Dosage: 510 MILLIGRAM, SINGLE
     Route: 041
     Dates: start: 20211021, end: 20211021
  8. CARBOPLATIN [Suspect]
     Active Substance: CARBOPLATIN
     Dosage: 400 MILLIGRAM, ONCE/4WEEKS, MOST RECENT DOSE 10/MAR/2022
     Route: 041
     Dates: start: 20211118
  9. PACLITAXEL [Suspect]
     Active Substance: PACLITAXEL
     Indication: Lung adenocarcinoma
     Dosage: 360 MILLIGRAM, SINGLE
     Route: 041
     Dates: start: 20211021, end: 20211021
  10. PACLITAXEL [Suspect]
     Active Substance: PACLITAXEL
     Dosage: 280 MILLIGRAM, ONCE/4WEEKS, MOST RECENT DOSE 10/MAR/2022
     Route: 041
     Dates: start: 20211118

REACTIONS (8)
  - Rhabdomyolysis [Recovered/Resolved]
  - Aspartate aminotransferase increased [Recovered/Resolved]
  - Blood corticotrophin increased [Recovered/Resolved]
  - Alanine aminotransferase increased [Recovered/Resolved]
  - Hypertension [Recovering/Resolving]
  - Neutrophil count decreased [Recovered/Resolved]
  - Neuropathy peripheral [Recovering/Resolving]
  - Malaise [Recovering/Resolving]

NARRATIVE: CASE EVENT DATE: 20211024
